FAERS Safety Report 4669912-8 (Version None)
Quarter: 2005Q2

REPORT INFORMATION
  Report Type: 
  Country: None (occurrence: None)
  Receive Date: 20050523
  Receipt Date: 20050516
  Transmission Date: 20051028
  Serious: Yes (Other)
  Sender: FDA-Public Use
  Company Number: PHFR2005GB01816

PATIENT
  Sex: Female

DRUGS (7)
  1. DIOVAN [Suspect]
     Indication: HYPERTENSION
     Dosage: 80 MG, QD
  2. OMEPRAZOLE [Concomitant]
  3. LEVOTHYROXINE SODIUM [Concomitant]
  4. BENDROFLUAZIDE [Concomitant]
  5. TEMAZEPAM [Concomitant]
  6. CO-PROXAMOL [Concomitant]
  7. SIMVASTATIN [Concomitant]
     Dates: end: 20050401

REACTIONS (1)
  - BLOOD CREATINE PHOSPHOKINASE INCREASED [None]
